FAERS Safety Report 7104128-7 (Version None)
Quarter: 2010Q4

REPORT INFORMATION
  Report Type: 
  Country: None (occurrence: None)
  Receive Date: 20101115
  Receipt Date: 20100527
  Transmission Date: 20110411
  Serious: Yes (Other)
  Sender: FDA-Public Use
  Company Number: US-ALLERGAN-1006943US

PATIENT
  Age: 44 Year
  Sex: Female

DRUGS (1)
  1. BOTOX COSMETIC [Suspect]
     Indication: SKIN WRINKLING
     Dosage: UNK
     Route: 030
     Dates: start: 20100201, end: 20100201

REACTIONS (4)
  - DRY EYE [None]
  - DYSPHAGIA [None]
  - DYSPHONIA [None]
  - VITREOUS FLOATERS [None]
